FAERS Safety Report 18975133 (Version 5)
Quarter: 2021Q3

REPORT INFORMATION
  Report Type: Report from Study
  Country: AU (occurrence: AU)
  Receive Date: 20210305
  Receipt Date: 20210712
  Transmission Date: 20211014
  Serious: Yes (Other)
  Sender: FDA-Public Use
  Company Number: AU-EMD SERONO-9222039

PATIENT
  Age: 51 Year
  Sex: Female

DRUGS (4)
  1. MAVENCLAD [Suspect]
     Active Substance: CLADRIBINE
     Dosage: FIRST YEAR SECOND WEEK THERAPY
     Dates: start: 20190409, end: 20190413
  2. MAVENCLAD [Suspect]
     Active Substance: CLADRIBINE
     Indication: MULTIPLE SCLEROSIS
     Dosage: FIRST YEAR FIRST WEEK THERAPY
     Dates: start: 20190305, end: 20190309
  3. MAVENCLAD [Suspect]
     Active Substance: CLADRIBINE
     Dosage: SECOND YEAR SECOND WEEK THERAPY: MISSED HER 3RD DAY DOSE AND TOOK FINAL DOSE ON 06 JUN 2020
     Dates: start: 20200601, end: 20200606
  4. MAVENCLAD [Suspect]
     Active Substance: CLADRIBINE
     Dosage: SECOND YEAR FIRST WEEK THERAPY
     Dates: start: 20200227, end: 20200302

REACTIONS (8)
  - Malaise [Unknown]
  - Blindness transient [Unknown]
  - Muscle atrophy [Unknown]
  - Chromaturia [Unknown]
  - Aphasia [Unknown]
  - White blood cell count decreased [Unknown]
  - Motor neurone disease [Unknown]
  - Blood creatine phosphokinase increased [Unknown]

NARRATIVE: CASE EVENT DATE: 2021
